FAERS Safety Report 7090173-7 (Version None)
Quarter: 2010Q4

REPORT INFORMATION
  Report Type: 
  Country: None (occurrence: None)
  Receive Date: 20101104
  Receipt Date: 20101104
  Transmission Date: 20110411
  Serious: No
  Sender: FDA-Public Use
  Company Number: None

PATIENT
  Age: 9 Year
  Sex: Female

DRUGS (2)
  1. TUBERSOL [Suspect]
     Indication: VACCINIA VIRUS INFECTION
     Dosage: L FOREARM /ID
     Route: 023
     Dates: start: 20100216
  2. H1N1 [Suspect]
     Indication: VACCINIA VIRUS INFECTION
     Dosage: IM / L ARM
     Route: 030
     Dates: start: 20091218

REACTIONS (1)
  - HEADACHE [None]
